FAERS Safety Report 10525664 (Version 2)
Quarter: 2014Q4

REPORT INFORMATION
  Report Type: Spontaneous
  Country: AU (occurrence: AU)
  Receive Date: 20141017
  Receipt Date: 20141113
  Transmission Date: 20150528
  Serious: Yes (Life-Threatening, Hospitalization, Other)
  Sender: FDA-Public Use
  Company Number: PHHY2014AU132798

PATIENT
  Age: 52 Year
  Sex: Female

DRUGS (6)
  1. VITAMIN D [Concomitant]
     Active Substance: CHOLECALCIFEROL
     Indication: MULTIPLE SCLEROSIS
     Dosage: 1000 IU, DAILY
     Route: 048
     Dates: start: 20121204
  2. GILENYA [Suspect]
     Active Substance: FINGOLIMOD HYDROCHLORIDE
     Indication: MULTIPLE SCLEROSIS
     Dosage: DAILY
     Route: 048
     Dates: start: 20120801, end: 20141003
  3. VALERIAN [Concomitant]
     Active Substance: VALERIAN
     Indication: INSOMNIA
     Dosage: NOCTE
     Route: 048
  4. MOVICOL [Concomitant]
     Active Substance: POLYETHYLENE GLYCOL 3350\POTASSIUM CHLORIDE\SODIUM BICARBONATE\SODIUM CHLORIDE
     Indication: CONSTIPATION
     Route: 048
     Dates: start: 20120207
  5. BACLOFEN. [Concomitant]
     Active Substance: BACLOFEN
     Indication: MUSCLE SPASTICITY
     Dosage: UNK UKN, BID
     Route: 048
     Dates: start: 20090801
  6. NITRAZEPAM [Concomitant]
     Active Substance: NITRAZEPAM
     Indication: INSOMNIA
     Dosage: 2.5 MG, UNK
     Route: 048
     Dates: start: 20080619

REACTIONS (4)
  - Respiratory failure [Not Recovered/Not Resolved]
  - Infectious pleural effusion [Unknown]
  - Pneumothorax [Unknown]
  - Pneumonia [Unknown]

NARRATIVE: CASE EVENT DATE: 20141003
